FAERS Safety Report 6254974-7 (Version None)
Quarter: 2009Q3

REPORT INFORMATION
  Report Type: 
  Country: None (occurrence: None)
  Receive Date: 20090702
  Receipt Date: 20090626
  Transmission Date: 20100115
  Serious: Yes (Other)
  Sender: FDA-Public Use
  Company Number: GB-MERCK-0906USA05790

PATIENT
  Age: 68 Year
  Sex: Female

DRUGS (5)
  1. PRINIVIL [Suspect]
     Indication: BLOOD PRESSURE INCREASED
     Route: 048
     Dates: start: 20090324, end: 20090410
  2. AMIAS [Suspect]
     Indication: BLOOD PRESSURE INCREASED
     Route: 048
     Dates: start: 20090413, end: 20090430
  3. BENDROFLUMETHIAZIDE [Concomitant]
     Route: 065
  4. ACETAMINOPHEN AND DIHYDROCODEINE BITARTRATE [Concomitant]
     Route: 065
  5. OMEPRAZOLE [Concomitant]
     Route: 065

REACTIONS (5)
  - INSOMNIA [None]
  - MYALGIA [None]
  - OROPHARYNGEAL BLISTERING [None]
  - STRESS [None]
  - TONGUE BLISTERING [None]
